FAERS Safety Report 11419448 (Version 1)
Quarter: 2015Q3

REPORT INFORMATION
  Report Type: Spontaneous
  Country: US (occurrence: None)
  Receive Date: 20150825
  Receipt Date: 20150825
  Transmission Date: 20151125
  Serious: Yes (Hospitalization)
  Sender: FDA-Public Use
  Company Number: None

PATIENT
  Age: 79 Year
  Sex: Male
  Weight: 79.4 kg

DRUGS (21)
  1. AMOXICILLIN-POT CLAVULANATE (AUGMENTIN) [Concomitant]
  2. PSYLLIUM SEED WITH DEXTROSE, (FIBER ORAL) [Concomitant]
  3. CELEXA [Concomitant]
     Active Substance: CITALOPRAM HYDROBROMIDE
  4. CLOBETASOL PROPIONATE (CLOBETASOL TOP) [Concomitant]
  5. CHOLESCALCIFEROL, VITAMIN D3 (VITAMIN D) [Concomitant]
  6. SULFAMETHOXAZOLE-TRIMETHOPRIA (BACTRIM DS) [Concomitant]
  7. TADALAFIL [Concomitant]
     Active Substance: TADALAFIL
  8. BIFIDOBACTGERIUM INFANTS (ALIGN ORAL) [Concomitant]
  9. TOVIAZ [Suspect]
     Active Substance: FESOTERODINE FUMARATE
     Indication: HYPERTONIC BLADDER
     Route: 048
     Dates: start: 20150804, end: 20150821
  10. CALCIUM [Concomitant]
     Active Substance: CALCIUM
  11. MULTIVIT + MINERAL/FERROUS FUM (MULTI VITAMIN ORAL) [Concomitant]
  12. DONEPEZIL. [Concomitant]
     Active Substance: DONEPEZIL
  13. DOCUSATE (COLACE) [Concomitant]
  14. TESTOSTERONE CYPIONAE (DEPO-TESTOSTERONE) [Concomitant]
  15. NAPROXEN SODIUM (ALEVE) [Concomitant]
  16. BISACODYL (DULCOLAX) [Concomitant]
  17. MEMANTINE (NAMENDA) [Concomitant]
  18. PIMECROLIMUS (ELIDEL) [Concomitant]
  19. CARBONATE [Concomitant]
  20. ASCORBIC ACID (VITAMIN C) [Concomitant]
     Active Substance: ASCORBIC ACID
  21. NYSTATIN-TRIAMCINOLONE (MYCOLOG) [Concomitant]

REACTIONS (7)
  - Urinary tract infection [None]
  - Somnolence [None]
  - Fatigue [None]
  - Diarrhoea [None]
  - Nausea [None]
  - Urinary retention [None]
  - Asthenia [None]

NARRATIVE: CASE EVENT DATE: 20150824
